FAERS Safety Report 16351638 (Version 1)
Quarter: 2019Q2

REPORT INFORMATION
  Report Type: Spontaneous
  Country: CN (occurrence: CN)
  Receive Date: 20190524
  Receipt Date: 20190524
  Transmission Date: 20190711
  Serious: Yes (Other)
  Sender: FDA-Public Use
  Company Number: CN-ROCHE-2322798

PATIENT
  Age: 56 Year
  Sex: Male

DRUGS (9)
  1. GEFITINIB. [Concomitant]
     Active Substance: GEFITINIB
     Indication: LUNG ADENOCARCINOMA
     Route: 065
     Dates: start: 20160310
  2. ENDOSTAR [Concomitant]
     Active Substance: ENDOSTATIN
     Route: 065
     Dates: start: 20160601, end: 20160622
  3. CONMANA [Concomitant]
     Active Substance: ICOTINIB
     Indication: LUNG ADENOCARCINOMA
     Route: 048
     Dates: start: 20160424, end: 20160528
  4. CARBOPLATIN. [Concomitant]
     Active Substance: CARBOPLATIN
     Indication: LUNG ADENOCARCINOMA
     Dosage: DAY1
     Route: 065
     Dates: start: 20160601, end: 20160622
  5. ALIMTA [Concomitant]
     Active Substance: PEMETREXED DISODIUM
     Indication: LUNG ADENOCARCINOMA
     Dosage: DAY1
     Route: 065
     Dates: start: 20160601, end: 20160622
  6. ICOTINIB [Concomitant]
     Active Substance: ICOTINIB
     Indication: LUNG ADENOCARCINOMA
     Route: 048
     Dates: start: 20160809, end: 20180307
  7. CRIZOTINIB [Concomitant]
     Active Substance: CRIZOTINIB
     Indication: LUNG ADENOCARCINOMA
     Route: 048
     Dates: start: 20160809, end: 20180307
  8. BEVACIZUMAB. [Suspect]
     Active Substance: BEVACIZUMAB
     Indication: LUNG ADENOCARCINOMA
     Route: 065
     Dates: start: 20160601, end: 20160707
  9. ENDOSTAR [Concomitant]
     Active Substance: ENDOSTATIN
     Indication: LUNG ADENOCARCINOMA
     Route: 065
     Dates: start: 20160310, end: 20160528

REACTIONS (2)
  - Tumour thrombosis [Unknown]
  - Hepatic cyst [Unknown]
